FAERS Safety Report 5367082-4 (Version None)
Quarter: 2007Q2

REPORT INFORMATION
  Report Type: 
  Country: None (occurrence: None)
  Receive Date: 20070622
  Receipt Date: 20070621
  Transmission Date: 20071010
  Serious: Yes (Hospitalization)
  Sender: FDA-Public Use
  Company Number: B0476221A

PATIENT
  Age: 47 Year
  Sex: Male

DRUGS (9)
  1. ZOVIRAX [Suspect]
     Dosage: 800MG THREE TIMES PER DAY
     Route: 042
     Dates: start: 20070602
  2. HYPNOVEL [Concomitant]
     Route: 065
  3. FENTANYL [Concomitant]
     Route: 065
  4. HEMISUCCINATE D'HYDROCORTISONE [Concomitant]
     Route: 065
  5. ACTRAPID [Concomitant]
     Route: 065
  6. HEPARIN [Concomitant]
     Route: 065
  7. ROCEPHIN [Concomitant]
     Route: 065
  8. ROVAMYCINE [Concomitant]
     Route: 065
  9. TEGELINE [Concomitant]
     Route: 065

REACTIONS (3)
  - BLOOD ALKALINE PHOSPHATASE INCREASED [None]
  - CHOLESTASIS [None]
  - HEPATOCELLULAR DAMAGE [None]
